FAERS Safety Report 7678593-0 (Version None)
Quarter: 2011Q3

REPORT INFORMATION
  Report Type: 
  Country: None (occurrence: None)
  Receive Date: 20110811
  Receipt Date: 20110806
  Transmission Date: 20111222
  Serious: Yes (Death, Other)
  Sender: FDA-Public Use
  Company Number: AT-PFIZER INC-2011143595

PATIENT
  Age: 66 Year
  Sex: Male
  Weight: 95 kg

DRUGS (13)
  1. AMLODIPINE/VALSARTAN [Concomitant]
  2. DOXAZOSIN [Concomitant]
  3. ETALPHA [Concomitant]
  4. ASPIRIN [Concomitant]
  5. PANTOPRAZOLE SODIUM [Concomitant]
  6. HYDAL [Concomitant]
  7. VIAGRA [Suspect]
     Dosage: 50 MG, 1X/DAY
     Route: 048
     Dates: start: 20110301
  8. VIAGRA [Suspect]
     Indication: PERIPHERAL ARTERIAL OCCLUSIVE DISEASE
     Dosage: 50 MG, 1X/DAY
     Route: 048
     Dates: start: 20101007, end: 20101101
  9. OSVAREN [Concomitant]
  10. CLINDAMYCIN [Concomitant]
  11. CIPROFLAXACIN [Concomitant]
  12. VASONIT [Concomitant]
  13. AMLODIPINE [Concomitant]

REACTIONS (4)
  - CARDIOGENIC SHOCK [None]
  - VENTRICULAR FIBRILLATION [None]
  - ISCHAEMIC CARDIOMYOPATHY [None]
  - VASCULAR OPERATION [None]
